FAERS Safety Report 12384738 (Version 1)
Quarter: 2016Q2

REPORT INFORMATION
  Report Type: Spontaneous
  Country: US (occurrence: US)
  Receive Date: 20160519
  Receipt Date: 20160519
  Transmission Date: 20160815
  Serious: No
  Sender: FDA-Public Use
  Company Number: US-PFIZER INC-2016262125

PATIENT
  Age: 41 Year
  Sex: Female
  Weight: 46 kg

DRUGS (1)
  1. VFEND [Suspect]
     Active Substance: VORICONAZOLE
     Dosage: 50MG, 6 TABLETS BY MOUTH TWICE A DAY
     Route: 048
     Dates: start: 201605

REACTIONS (1)
  - Discomfort [Not Recovered/Not Resolved]

NARRATIVE: CASE EVENT DATE: 20160516
